FAERS Safety Report 6174326-8 (Version None)
Quarter: 2009Q2

REPORT INFORMATION
  Report Type: 
  Country: None (occurrence: None)
  Receive Date: 20090430
  Receipt Date: 20080516
  Transmission Date: 20091009
  Serious: No
  Sender: FDA-Public Use
  Company Number: US-ASTRAZENECA-2008UW10133

PATIENT
  Age: 81 Year
  Sex: Female

DRUGS (6)
  1. NEXIUM [Suspect]
     Indication: OESOPHAGEAL DISORDER
     Route: 048
     Dates: start: 20080115
  2. TRIAMTERENE [Concomitant]
  3. MECLIZINE [Concomitant]
  4. VITAMIN E [Concomitant]
  5. ASCORBIC ACID [Concomitant]
  6. POTASSIUM CHLORIDE [Concomitant]

REACTIONS (2)
  - BOWEL MOVEMENT IRREGULARITY [None]
  - RASH [None]
